FAERS Safety Report 4587090-0 (Version None)
Quarter: 2005Q1

REPORT INFORMATION
  Report Type: 
  Country: None (occurrence: None)
  Receive Date: 20050214
  Receipt Date: 20050126
  Transmission Date: 20050727
  Serious: No
  Sender: FDA-Public Use
  Company Number: 10114

PATIENT
  Sex: Male

DRUGS (2)
  1. METHOTREXATE [Suspect]
     Indication: BREAST CANCER
     Dosage: 480 MG TOTAL
  2. FLUOROURACIL [Suspect]
     Indication: BREAST CANCER

REACTIONS (5)
  - DRUG EXPOSURE DURING PREGNANCY [None]
  - FACIAL DYSMORPHISM [None]
  - HYPERTELORISM OF ORBIT [None]
  - LOW SET EARS [None]
  - MICROCEPHALY [None]
